FAERS Safety Report 24699484 (Version 1)
Quarter: 2024Q4

REPORT INFORMATION
  Report Type: Report from Study
  Country: IT (occurrence: IT)
  Receive Date: 20241205
  Receipt Date: 20241205
  Transmission Date: 20250115
  Serious: Yes (Hospitalization, Other)
  Sender: BAXTER
  Company Number: None

PATIENT
  Age: 54 Year
  Sex: Female
  Weight: 69 kg

DRUGS (13)
  1. DOXORUBICIN [Suspect]
     Active Substance: DOXORUBICIN
     Indication: Hodgkin^s disease
     Dosage: (FIRST CYCLE) FIRST DOSE ADMINISTERED: DOXORUBICIN HYDROCHLORIDE, BAXTER BAG, 41.75 MG
     Route: 042
     Dates: start: 20240911, end: 20240911
  2. DOXORUBICIN [Suspect]
     Active Substance: DOXORUBICIN
     Dosage: (FIRST CYCLE) SECOND DOSE ADMINISTERED: DOXORUBICIN HYDROCHLORIDE, BAXTER BAG, 34 MG
     Route: 042
     Dates: start: 20240925, end: 20240925
  3. DOXORUBICIN [Suspect]
     Active Substance: DOXORUBICIN
     Dosage: (SECOND CYCLE) FIRST DOSE ADMINISTERED: DOXORUBICIN HYDROCHLORIDE, BAXTER BAG, 34 MG
     Route: 042
     Dates: start: 20241009, end: 20241009
  4. DOXORUBICIN [Suspect]
     Active Substance: DOXORUBICIN
     Dosage: (SECOND CYCLE) SECOND DOSE ADMINISTERED: DOXORUBICIN HYDROCHLORIDE, BAXTER BAG, 30 MG
     Route: 042
     Dates: start: 20241023, end: 20241023
  5. ADCETRIS [Suspect]
     Active Substance: BRENTUXIMAB VEDOTIN
     Indication: Hodgkin^s disease
     Dosage: (ADCETRIS COMBINED WITH AVD (ADRIAMYCIN, VINBLASTINE, AND DACARBAZINE) CHEMOTHERAPY 1.2 MG/KG, TAKEN
     Route: 042
     Dates: start: 20240911, end: 20241023
  6. VINBLASTINE SULFATE [Suspect]
     Active Substance: VINBLASTINE SULFATE
     Indication: Hodgkin^s disease
     Dosage: (FIRST CYCLE) FIRST DOSE ADMINISTERED: VINBLASTINE VELBE EG, 10.02 MG
     Route: 042
     Dates: start: 20240911, end: 20240911
  7. VINBLASTINE SULFATE [Suspect]
     Active Substance: VINBLASTINE SULFATE
     Dosage: (FIRST CYCLE) SECOND DOSE ADMINISTERED: VINBLASTINE VELBE EG, 8 MG
     Route: 042
     Dates: start: 20240925, end: 20240925
  8. VINBLASTINE SULFATE [Suspect]
     Active Substance: VINBLASTINE SULFATE
     Dosage: (FIRST CYCLE) SECOND DOSE ADMINISTERED: VINBLASTINE VELBE EG, 8 MG
     Route: 042
     Dates: start: 20241009, end: 20241009
  9. VINBLASTINE SULFATE [Suspect]
     Active Substance: VINBLASTINE SULFATE
     Dosage: (SECOND CYCLE) SECOND DOSE ADMINISTERED: VINBLASTINE VELBE EG, 7 MG
     Route: 042
     Dates: start: 20241023, end: 20241023
  10. DACARBAZINE [Suspect]
     Active Substance: DACARBAZINE
     Indication: Hodgkin^s disease
     Dosage: (FIRST CYCLE) FIRST DOSE ADMINISTERED: DACARBAZINE MEDAC, 626.25 MG
     Route: 042
     Dates: start: 20240911, end: 20240911
  11. DACARBAZINE [Suspect]
     Active Substance: DACARBAZINE
     Dosage: (FIRST CYCLE) SECOND DOSE ADMINISTERED: DACARBAZINE MEDAC, 500 MG
     Route: 042
     Dates: start: 20240925, end: 20240925
  12. DACARBAZINE [Suspect]
     Active Substance: DACARBAZINE
     Dosage: (SECOND CYCLE) FIRST DOSE ADMINISTERED: DACARBAZINE MEDAC, 500 MG
     Route: 042
     Dates: start: 20241009, end: 20241009
  13. DACARBAZINE [Suspect]
     Active Substance: DACARBAZINE
     Dosage: (SECOND CYCLE) SECOND DOSE ADMINISTERED: DACARBAZINE MEDAC, 470 MG
     Route: 042
     Dates: start: 20241009, end: 20241009

REACTIONS (1)
  - Polyneuropathy [Recovering/Resolving]

NARRATIVE: CASE EVENT DATE: 20241020
